FAERS Safety Report 15307013 (Version 2)
Quarter: 2018Q3

REPORT INFORMATION
  Report Type: Spontaneous
  Country: US (occurrence: US)
  Receive Date: 20180822
  Receipt Date: 20180910
  Transmission Date: 20181010
  Serious: Yes (Hospitalization)
  Sender: FDA-Public Use
  Company Number: US-LEXICON PHARMACEUTICALS, INC-18-1606-01001

PATIENT
  Age: 51 Year
  Sex: Female

DRUGS (23)
  1. TELOTRISTAT ETHYL [Suspect]
     Active Substance: TELOTRISTAT ETHYL
     Indication: CARCINOID SYNDROME
     Route: 048
     Dates: start: 20171128
  2. SENNA [Concomitant]
     Active Substance: SENNA LEAF\SENNOSIDES\SENNOSIDES A AND B
     Dosage: 176 MG / 5 ML
  3. COMPAZINE [Concomitant]
     Active Substance: PROCHLORPERAZINE MALEATE
  4. MORPHINE SULFATE. [Concomitant]
     Active Substance: MORPHINE SULFATE
  5. PROVENTIL [Concomitant]
     Active Substance: ALBUTEROL
  6. ENOXAPARIN [Concomitant]
     Active Substance: ENOXAPARIN
     Dosage: 100 MG/ML
  7. RANITIDINE. [Concomitant]
     Active Substance: RANITIDINE
  8. GABAPENTIN. [Concomitant]
     Active Substance: GABAPENTIN
  9. FOLIC ACID. [Concomitant]
     Active Substance: FOLIC ACID
  10. LASIX [Concomitant]
     Active Substance: FUROSEMIDE
     Route: 048
  11. LASIX [Concomitant]
     Active Substance: FUROSEMIDE
     Route: 048
  12. CHOLECALCIFEROL [Concomitant]
     Active Substance: CHOLECALCIFEROL
  13. BENAZEPRIL HCL [Concomitant]
     Active Substance: BENAZEPRIL HYDROCHLORIDE
  14. LORAZEPAM. [Concomitant]
     Active Substance: LORAZEPAM
  15. NYSTATIN. [Concomitant]
     Active Substance: NYSTATIN
  16. COLACE [Concomitant]
     Active Substance: DOCUSATE SODIUM
  17. POLYETHYLENE GLYCOL [Concomitant]
     Active Substance: POLYETHYLENE GLYCOLS
  18. CLARITIN [Concomitant]
     Active Substance: LORATADINE
  19. ALBUTEROL. [Concomitant]
     Active Substance: ALBUTEROL
  20. MUPIROCIN. [Concomitant]
     Active Substance: MUPIROCIN
  21. SANDOSTATIN [Concomitant]
     Active Substance: OCTREOTIDE ACETATE
     Dosage: 100 MCG/ML
  22. HYDROCO / APAP [Concomitant]
     Dosage: 10?325 MG
  23. SPIRONOLACTONE. [Concomitant]
     Active Substance: SPIRONOLACTONE

REACTIONS (6)
  - Fluid overload [Recovering/Resolving]
  - Oedema peripheral [Recovering/Resolving]
  - Fall [Recovering/Resolving]
  - Drug dose omission [Recovered/Resolved]
  - Nausea [Unknown]
  - Cardiac failure congestive [Unknown]

NARRATIVE: CASE EVENT DATE: 20180801
